FAERS Safety Report 19995628 (Version 1)
Quarter: 2021Q4

REPORT INFORMATION
  Report Type: Spontaneous
  Country: US (occurrence: US)
  Receive Date: 20211026
  Receipt Date: 20211026
  Transmission Date: 20220303
  Serious: Yes (Hospitalization)
  Sender: FDA-Public Use
  Company Number: None

PATIENT
  Age: 4 Year
  Sex: Male
  Weight: 21.2 kg

DRUGS (2)
  1. VINCRISTINE [Suspect]
     Active Substance: VINCRISTINE
     Indication: Acute lymphocytic leukaemia
     Dosage: ?          OTHER FREQUENCY:WEEKLY;
     Route: 042
     Dates: start: 20210922, end: 20211013
  2. DEXAMETHASONE [Concomitant]
     Active Substance: DEXAMETHASONE
     Dates: start: 20210922

REACTIONS (12)
  - Constipation [None]
  - Abdominal distension [None]
  - Abdominal pain [None]
  - Dyspnoea [None]
  - Oxygen saturation decreased [None]
  - Cough [None]
  - Respiratory rate increased [None]
  - Tachycardia [None]
  - Muscular weakness [None]
  - Pulmonary oedema [None]
  - Lung infiltration [None]
  - Suspected product contamination [None]

NARRATIVE: CASE EVENT DATE: 20211013
